FAERS Safety Report 22219949 (Version 1)
Quarter: 2023Q2

REPORT INFORMATION
  Report Type: Spontaneous
  Country: US (occurrence: US)
  Receive Date: 20230417
  Receipt Date: 20230417
  Transmission Date: 20230722
  Serious: Yes (Other)
  Sender: FDA-Public Use
  Company Number: US-AMNEAL PHARMACEUTICALS-2023-AMRX-01201

PATIENT
  Age: 52 Year
  Sex: Female

DRUGS (1)
  1. BACLOFEN [Suspect]
     Active Substance: BACLOFEN
     Indication: Product used for unknown indication
     Dosage: 464 MICS/DAY
     Route: 065

REACTIONS (1)
  - Medical device site fibrosis [Recovered/Resolved]

NARRATIVE: CASE EVENT DATE: 20230406
